FAERS Safety Report 4644163-1 (Version None)
Quarter: 2005Q2

REPORT INFORMATION
  Report Type: 
  Country: None (occurrence: None)
  Receive Date: 20050425
  Receipt Date: 20050420
  Transmission Date: 20051028
  Serious: Yes (Congenital Anomaly, Other)
  Sender: FDA-Public Use
  Company Number: SE-GLAXOSMITHKLINE-B0378775A

PATIENT
  Age: 1 Day
  Sex: Male

DRUGS (5)
  1. ZINACEF [Suspect]
     Indication: C-REACTIVE PROTEIN INCREASED
     Route: 042
     Dates: start: 20050201, end: 20050201
  2. KEPPRA [Suspect]
  3. HERMOLEPSIN [Suspect]
     Dosage: 600MG PER DAY
  4. ANDAPSIN [Suspect]
  5. NIFEREX [Suspect]

REACTIONS (6)
  - AORTIC STENOSIS [None]
  - BLOOD BILIRUBIN INCREASED [None]
  - DRUG EXPOSURE DURING PREGNANCY [None]
  - HEART DISEASE CONGENITAL [None]
  - HEPATIC ENZYME INCREASED [None]
  - TRANSAMINASES INCREASED [None]
